FAERS Safety Report 18373907 (Version 2)
Quarter: 2021Q2

REPORT INFORMATION
  Report Type: Report from Study
  Country: None (occurrence: CA)
  Receive Date: 20201013
  Receipt Date: 20210426
  Transmission Date: 20210717
  Serious: Yes (Hospitalization, Other)
  Sender: FDA-Public Use
  Company Number: CA-ABBVIE-20K-028-3600896-00

PATIENT
  Age: 67 Year
  Sex: Male

DRUGS (2)
  1. COLCHICINE. [Suspect]
     Active Substance: COLCHICINE
     Indication: PRODUCT USED FOR UNKNOWN INDICATION
     Route: 065
  2. HUMIRA [Suspect]
     Active Substance: ADALIMUMAB
     Indication: PSORIASIS
     Route: 058
     Dates: start: 20180711

REACTIONS (6)
  - Rash [Unknown]
  - Fatigue [Unknown]
  - Injection site haematoma [Not Recovered/Not Resolved]
  - Arterial occlusive disease [Unknown]
  - Myocardial infarction [Recovered/Resolved]
  - Pericarditis [Unknown]

NARRATIVE: CASE EVENT DATE: 2020
